FAERS Safety Report 5324511-X (Version None)
Quarter: 2007Q2

REPORT INFORMATION
  Report Type: 
  Country: None (occurrence: None)
  Receive Date: 20070514
  Receipt Date: 20070504
  Transmission Date: 20071010
  Serious: Yes (Life-Threatening, Hospitalization, Other)
  Sender: FDA-Public Use
  Company Number: US-PFIZER INC-2007027449

PATIENT
  Sex: Male
  Weight: 93 kg

DRUGS (1)
  1. CHANTIX [Suspect]
     Indication: EX-SMOKER
     Dates: start: 20070101, end: 20070118

REACTIONS (6)
  - BLOOD PRESSURE INCREASED [None]
  - FLUID RETENTION [None]
  - GLOMERULONEPHRITIS [None]
  - NEPHROSCLEROSIS [None]
  - RENAL FAILURE [None]
  - RENAL TUBULAR NECROSIS [None]
